FAERS Safety Report 24846306 (Version 1)
Quarter: 2025Q1

REPORT INFORMATION
  Report Type: Spontaneous
  Country: US (occurrence: None)
  Receive Date: 20250105
  Receipt Date: 20250105
  Transmission Date: 20250409
  Serious: Yes (Disabling, Other)
  Sender: FDA-CTU
  Company Number: None

PATIENT
  Age: 60 Year
  Sex: Male
  Weight: 87.75 kg

DRUGS (7)
  1. DIETARY SUPPLEMENT [Suspect]
     Active Substance: DIETARY SUPPLEMENT
     Indication: Muscular weakness
     Dosage: OTHER QUANTITY : 1 CAPSULE(S);?FREQUENCY : DAILY;?
     Route: 048
     Dates: start: 20250103, end: 20250104
  2. VARIOUS BLOOD PRESSURE MEDICINES [Concomitant]
  3. ALBUTEROL [Concomitant]
     Active Substance: ALBUTEROL
  4. disk inhaler [Concomitant]
  5. VITAMIN C [Concomitant]
     Active Substance: ASCORBIC ACID
  6. men^s one s day silver [Concomitant]
  7. alive multivitamin [Concomitant]

REACTIONS (5)
  - Gait disturbance [None]
  - Dysstasia [None]
  - Dysarthria [None]
  - Unresponsive to stimuli [None]
  - Cerebrovascular accident [None]

NARRATIVE: CASE EVENT DATE: 20250104
